FAERS Safety Report 8595244-1 (Version None)
Quarter: 2012Q3

REPORT INFORMATION
  Report Type: 
  Country: None (occurrence: None)
  Receive Date: 20120815
  Receipt Date: 20111003
  Transmission Date: 20120928
  Serious: Yes (Other)
  Sender: FDA-Public Use
  Company Number: CL-009507513-2011SP044375

PATIENT

DRUGS (4)
  1. IMPLANON [Suspect]
     Indication: CONTRACEPTION
     Dosage: 68 MG, UNKNOWN
     Route: 059
     Dates: start: 20110208
  2. LEVOTHYROXINE SODIUM [Concomitant]
     Indication: THYROIDITIS CHRONIC
     Dosage: UPDATE (03OCT2011): 88 UGR
     Route: 065
     Dates: start: 20110301
  3. MESALAMINE [Concomitant]
     Indication: INFLAMMATORY BOWEL DISEASE
     Dosage: UPDATE (03OCT2011)
     Route: 065
     Dates: start: 20110801
  4. AZULFIDINE [Concomitant]
     Indication: INFLAMMATORY BOWEL DISEASE
     Dosage: UPDATE (03OCT2011)
     Route: 065
     Dates: start: 20110801

REACTIONS (2)
  - PREGNANCY WITH IMPLANT CONTRACEPTIVE [None]
  - ABORTION MISSED [None]
